FAERS Safety Report 8978139 (Version 1)
Quarter: 2012Q4

REPORT INFORMATION
  Report Type: Spontaneous
  Country: US (occurrence: None)
  Receive Date: 20120828
  Receipt Date: 20120828
  Transmission Date: 20130627
  Serious: Yes (Death, Hospitalization, Other)
  Sender: FDA-Public Use
  Company Number: 218503

PATIENT
  Sex: Male

DRUGS (2)
  1. INNOHEP [Suspect]
     Indication: DRUG USE FOR UNKNOWN INDICATION
  2. WARFARIN [Suspect]
     Indication: DRUG USE FOR UNKNOWN INDICATION

REACTIONS (13)
  - Abdominal wall haematoma [None]
  - Pallor [None]
  - Hypotension [None]
  - Tachycardia [None]
  - Metabolic acidosis [None]
  - Haemoglobin decreased [None]
  - White blood cell count increased [None]
  - International normalised ratio increased [None]
  - Neutrophilia [None]
  - Urine output decreased [None]
  - General physical health deterioration [None]
  - Haemodialysis [None]
  - Abdominal compartment syndrome [None]
